FAERS Safety Report 9180306 (Version 1)
Quarter: 2013Q1

REPORT INFORMATION
  Report Type: Spontaneous
  Country: US (occurrence: US)
  Receive Date: 20130322
  Receipt Date: 20130322
  Transmission Date: 20140127
  Serious: No
  Sender: FDA-Public Use
  Company Number: US-009507513-1303USA009319

PATIENT
  Sex: Male

DRUGS (3)
  1. COZAAR [Suspect]
     Dosage: 25 MG A DAY
     Route: 048
     Dates: start: 201212
  2. COZAAR [Suspect]
     Dosage: 50 MG A DAY
     Route: 048
  3. COZAAR [Suspect]
     Dosage: 100 MG A DAY
     Route: 048

REACTIONS (1)
  - Drug ineffective [Unknown]
